FAERS Safety Report 9604390 (Version 1)
Quarter: 2013Q4

REPORT INFORMATION
  Report Type: Spontaneous
  Country: US (occurrence: US)
  Receive Date: 20131008
  Receipt Date: 20131008
  Transmission Date: 20140711
  Serious: No
  Sender: FDA-Public Use
  Company Number: US-GLAXOSMITHKLINE-A1036825A

PATIENT
  Age: 40 Year
  Sex: Female

DRUGS (3)
  1. POTIGA [Suspect]
     Indication: PARTIAL SEIZURES
     Dosage: 650MG PER DAY
     Route: 048
     Dates: start: 20120605
  2. VIMPAT [Concomitant]
  3. MYSOLINE [Concomitant]

REACTIONS (2)
  - Urine analysis abnormal [Not Recovered/Not Resolved]
  - Chromaturia [Not Recovered/Not Resolved]
